FAERS Safety Report 18096668 (Version 1)
Quarter: 2020Q3

REPORT INFORMATION
  Report Type: Spontaneous
  Country: US (occurrence: US)
  Receive Date: 20200730
  Receipt Date: 20200730
  Transmission Date: 20201103
  Serious: Yes (Hospitalization)
  Sender: FDA-Public Use
  Company Number: None

PATIENT
  Age: 76 Year
  Sex: Female
  Weight: 51.2 kg

DRUGS (2)
  1. ASPIRIN. [Concomitant]
     Active Substance: ASPIRIN
     Dates: start: 20151201
  2. WARFARIN [Suspect]
     Active Substance: WARFARIN
     Indication: MITRAL VALVE REPLACEMENT
     Dosage: ?          OTHER FREQUENCY:5SUTUTHSA X 2.5MWF;?
     Route: 048
     Dates: start: 20151220

REACTIONS (4)
  - Haemorrhoids [None]
  - Polyp [None]
  - Diarrhoea [None]
  - Rectal haemorrhage [None]

NARRATIVE: CASE EVENT DATE: 20200727
